FAERS Safety Report 5326937-7 (Version None)
Quarter: 2007Q2

REPORT INFORMATION
  Report Type: 
  Country: None (occurrence: None)
  Receive Date: 20070511
  Receipt Date: 20070507
  Transmission Date: 20071010
  Serious: Yes (Other)
  Sender: FDA-Public Use
  Company Number: 013235

PATIENT
  Sex: Female

DRUGS (5)
  1. MEDROXYPROGESTERONE [Suspect]
     Dosage: ORAL
     Route: 048
     Dates: start: 19900101, end: 20010601
  2. ESTRADIOL [Suspect]
     Dosage: ORAL
     Route: 048
     Dates: start: 19900101, end: 20010601
  3. ESTRACE [Suspect]
     Dosage: ORAL
     Route: 048
     Dates: start: 19900101, end: 20010601
  4. PREMARIN [Suspect]
     Dosage: ORAL
     Route: 048
     Dates: start: 19900101, end: 20010601
  5. PROVERA [Suspect]
     Dosage: ORAL
     Route: 048
     Dates: start: 19900101, end: 20010601

REACTIONS (1)
  - BREAST CANCER FEMALE [None]
